FAERS Safety Report 4893232-X (Version None)
Quarter: 2006Q1

REPORT INFORMATION
  Report Type: 
  Country: None (occurrence: None)
  Receive Date: 20060124
  Receipt Date: 20060113
  Transmission Date: 20060701
  Serious: Yes (Other)
  Sender: FDA-Public Use
  Company Number: 2006AP000033

PATIENT
  Age: 3 Week
  Sex: Female

DRUGS (1)
  1. APO-PAROXETINE (PAROXETINE HYDROCHLORIDE) [Suspect]
     Indication: DYSTHYMIC DISORDER
     Dosage: SEE IMAGE
     Route: 064
     Dates: start: 20040422, end: 20050613

REACTIONS (2)
  - DRUG EXPOSURE DURING PREGNANCY [None]
  - HAEMANGIOMA CONGENITAL [None]
